FAERS Safety Report 8022457-X (Version None)
Quarter: 2011Q4

REPORT INFORMATION
  Report Type: 
  Country: None (occurrence: None)
  Receive Date: 20111229
  Receipt Date: 20111215
  Transmission Date: 20120403
  Serious: Yes (Other)
  Sender: FDA-Public Use
  Company Number: 1000025428

PATIENT
  Age: 50 Year
  Sex: Female
  Weight: 70.3 kg

DRUGS (4)
  1. ESCITALOPRAM OXALATE [Suspect]
     Indication: DEPRESSION
     Dosage: 20 MG (20 MG, 1 IN 1 D),ORAL
     Route: 048
     Dates: start: 20100929, end: 20110807
  2. QUILONUM RETARD (LITHIUM CARBONATE)(LITHIUM CARBONATE) [Concomitant]
  3. ESCITALOPRAM OXALATE [Suspect]
     Indication: DEPRESSION
     Dosage: 10 MG (10 MG, 1 IN 1 D),ORAL, 5 MG (5 MG, 1 IN 1 D),ORAL
     Route: 048
     Dates: start: 20110808
  4. MIRTAZAPINE [Concomitant]

REACTIONS (10)
  - TERMINAL INSOMNIA [None]
  - NERVOUSNESS [None]
  - BLOOD THYROID STIMULATING HORMONE DECREASED [None]
  - RESTLESSNESS [None]
  - BLOOD PRESSURE INCREASED [None]
  - MYALGIA [None]
  - MALAISE [None]
  - AUTOIMMUNE THYROIDITIS [None]
  - SEROTONIN SYNDROME [None]
  - TREMOR [None]
